FAERS Safety Report 14544195 (Version 1)
Quarter: 2018Q1

REPORT INFORMATION
  Report Type: Spontaneous
  Country: US (occurrence: US)
  Receive Date: 20180215
  Receipt Date: 20180215
  Transmission Date: 20180509
  Serious: No
  Sender: FDA-Public Use
  Company Number: None

PATIENT
  Age: 58 Year
  Sex: Female

DRUGS (14)
  1. LOMOTIL [Concomitant]
     Active Substance: ATROPINE SULFATE\DIPHENOXYLATE HYDROCHLORIDE
  2. NABUMETONE. [Concomitant]
     Active Substance: NABUMETONE
  3. VALTREX [Concomitant]
     Active Substance: VALACYCLOVIR HYDROCHLORIDE
  4. LONSURF [Suspect]
     Active Substance: TIPIRACIL HYDROCHLORIDE\TRIFLURIDINE
     Indication: RECTAL CANCER
     Route: 048
     Dates: start: 20171213
  5. LANSOPRAZOLE. [Concomitant]
     Active Substance: LANSOPRAZOLE
  6. LISINOPRIL. [Concomitant]
     Active Substance: LISINOPRIL
  7. METFORMIN [Concomitant]
     Active Substance: METFORMIN HYDROCHLORIDE
  8. PROMETHAZINE [Concomitant]
     Active Substance: PROMETHAZINE\PROMETHAZINE HYDROCHLORIDE
  9. ZOLPIDEM TARTRATE. [Concomitant]
     Active Substance: ZOLPIDEM TARTRATE
  10. EMLA [Concomitant]
     Active Substance: LIDOCAINE\PRILOCAINE
  11. MARINOL [Concomitant]
     Active Substance: DRONABINOL
  12. ARMOUR THYRO [Concomitant]
  13. ATIVAN [Concomitant]
     Active Substance: LORAZEPAM
  14. LYRICA [Concomitant]
     Active Substance: PREGABALIN

REACTIONS (2)
  - Platelet disorder [None]
  - Metastases to lung [None]

NARRATIVE: CASE EVENT DATE: 20180213
